FAERS Safety Report 9806285 (Version 1)
Quarter: 2014Q1

REPORT INFORMATION
  Report Type: Spontaneous
  Country: DE (occurrence: None)
  Receive Date: 20140107
  Receipt Date: 20140107
  Transmission Date: 20141002
  Serious: Yes (Other)
  Sender: FDA-Public Use
  Company Number: PAN-2013-000286

PATIENT
  Age: 1 Day
  Sex: Male
  Weight: 2.6 kg

DRUGS (1)
  1. TACROLIMUS (TACROLIMUS) [Suspect]
     Indication: RENAL TRANSPLANT
     Route: 064

REACTIONS (4)
  - Pyelocaliectasis [None]
  - Ureteric stenosis [None]
  - Renal impairment neonatal [None]
  - Maternal drugs affecting foetus [None]
